FAERS Safety Report 8106909-X (Version None)
Quarter: 2011Q4

REPORT INFORMATION
  Report Type: 
  Country: None (occurrence: None)
  Receive Date: 20111227
  Receipt Date: 20111019
  Transmission Date: 20120403
  Serious: No
  Sender: FDA-Public Use
  Company Number: PHEH2011US04727

PATIENT
  Age: 43 Year
  Sex: Male

DRUGS (1)
  1. GILENYA [Suspect]
     Indication: MULTIPLE SCLEROSIS
     Dosage: 0.5 MG, QD, ORAL
     Route: 048
     Dates: start: 20110818

REACTIONS (5)
  - NAUSEA [None]
  - FATIGUE [None]
  - HYPERCHLORHYDRIA [None]
  - MALAISE [None]
  - ABDOMINAL DISCOMFORT [None]
